FAERS Safety Report 9348374 (Version 2)
Quarter: 2013Q3

REPORT INFORMATION
  Report Type: Spontaneous
  Country: US (occurrence: US)
  Receive Date: 20130614
  Receipt Date: 20130830
  Transmission Date: 20140515
  Serious: No
  Sender: FDA-Public Use
  Company Number: US-PFIZER INC-2013175453

PATIENT
  Age: 29 Year
  Sex: Male
  Weight: 113 kg

DRUGS (3)
  1. ALAVERT D-12 HOUR ALLERGY + SINUS [Suspect]
     Indication: HYPERSENSITIVITY
     Dosage: UNK, DAILY
     Route: 048
     Dates: start: 2013
  2. ALAVERT D-12 HOUR ALLERGY + SINUS [Suspect]
     Indication: MULTIPLE ALLERGIES
  3. MOTRIN [Concomitant]
     Indication: HEADACHE
     Dosage: 400 MG (TWO TABLETS OF 200MG), AS NEEDED
     Route: 048

REACTIONS (1)
  - Amphetamines positive [Unknown]
